FAERS Safety Report 6989875-X (Version None)
Quarter: 2010Q3

REPORT INFORMATION
  Report Type: 
  Country: None (occurrence: None)
  Receive Date: 20100916
  Receipt Date: 20100331
  Transmission Date: 20110219
  Serious: Yes (Other)
  Sender: FDA-Public Use
  Company Number: US-PFIZER INC-2010025496

PATIENT
  Sex: Male
  Weight: 81.633 kg

DRUGS (8)
  1. LYRICA [Suspect]
     Indication: BACK DISORDER
     Dosage: 100 MG, 3X/DAY
     Route: 048
  2. MOTRIN [Suspect]
  3. METFORMIN [Concomitant]
     Indication: DIABETES MELLITUS
     Dosage: 850 MG, 2X/DAY
     Route: 048
  4. ACETYLSALICYLIC ACID [Concomitant]
     Dosage: 81 MG, 2X/DAY
     Route: 048
  5. ADVICOR [Concomitant]
     Dosage: 500MG/20MG, 2X/DAY
     Route: 048
  6. PROTONIX [Concomitant]
     Indication: GASTROOESOPHAGEAL REFLUX DISEASE
     Dosage: 40 MG, 1X/DAY
     Route: 048
  7. AVAPRO [Concomitant]
     Dosage: 300 MG, 1X/DAY
     Route: 048
  8. INSULIN GLARGINE [Concomitant]
     Indication: DIABETES MELLITUS
     Dosage: 100UNITS/ML 65 UNITS DAILY

REACTIONS (4)
  - DRUG HYPERSENSITIVITY [None]
  - SEASONAL ALLERGY [None]
  - SLEEP APNOEA SYNDROME [None]
  - SLEEP DISORDER [None]
